FAERS Safety Report 7008335-3 (Version None)
Quarter: 2010Q3

REPORT INFORMATION
  Report Type: 
  Country: None (occurrence: None)
  Receive Date: 20100721
  Receipt Date: 20100517
  Transmission Date: 20110219
  Serious: No
  Sender: FDA-Public Use
  Company Number: LMI-2010-00418

PATIENT
  Age: 49 Year
  Sex: Female
  Weight: 68 kg

DRUGS (2)
  1. ABLAVAR [Suspect]
     Indication: NUCLEAR MAGNETIC RESONANCE IMAGING
     Dosage: POWER INJECTION (9 ML), INTRAVENOUS BOLUS
     Route: 040
     Dates: start: 20100512, end: 20100512
  2. ABLAVAR [Suspect]
     Indication: RENAL TRANSPLANT
     Dosage: POWER INJECTION (9 ML), INTRAVENOUS BOLUS
     Route: 040
     Dates: start: 20100512, end: 20100512

REACTIONS (1)
  - VULVOVAGINAL BURNING SENSATION [None]
